FAERS Safety Report 4525636-9 (Version None)
Quarter: 2004Q4

REPORT INFORMATION
  Report Type: 
  Country: None (occurrence: None)
  Receive Date: 20041213
  Receipt Date: 20041213
  Transmission Date: 20050328
  Serious: Yes (Life-Threatening, Hospitalization, Disabling, Congenital Anomaly, Other)
  Sender: FDA-Public Use
  Company Number: None

PATIENT
  Sex: Female
  Weight: 117.9352 kg

DRUGS (1)
  1. BEXTRA [Suspect]
     Indication: PAIN
     Dosage: 1 TAB DAILY ORAL
     Route: 048
     Dates: start: 20040716, end: 20040718

REACTIONS (17)
  - ABDOMINAL PAIN UPPER [None]
  - BACK PAIN [None]
  - DRUG DEPENDENCE [None]
  - DRUG HYPERSENSITIVITY [None]
  - FOOD ALLERGY [None]
  - IMPAIRED HEALING [None]
  - LUNG DISORDER [None]
  - MENSTRUAL DISORDER [None]
  - NAUSEA [None]
  - NECK PAIN [None]
  - OBESITY [None]
  - PRURITUS [None]
  - RASH [None]
  - SKIN DISORDER [None]
  - SKIN ULCER [None]
  - SURGICAL PROCEDURE REPEATED [None]
  - VISUAL ACUITY REDUCED [None]
